FAERS Safety Report 10306029 (Version 2)
Quarter: 2014Q3

REPORT INFORMATION
  Report Type: Spontaneous
  Country: US (occurrence: US)
  Receive Date: 20140715
  Receipt Date: 20140717
  Transmission Date: 20150326
  Serious: Yes (Other)
  Sender: FDA-Public Use
  Company Number: US-GLAXOSMITHKLINE-A1029178A

PATIENT
  Age: 79 Year
  Sex: Female

DRUGS (1)
  1. ADVAIR HFA [Suspect]
     Active Substance: FLUTICASONE PROPIONATE\SALMETEROL XINAFOATE
     Indication: PRODUCT USED FOR UNKNOWN INDICATION
     Route: 055
     Dates: start: 20110805

REACTIONS (5)
  - Arthritis [Not Recovered/Not Resolved]
  - Pneumonia [Unknown]
  - Oropharyngeal discomfort [Not Recovered/Not Resolved]
  - Genital ulceration [Unknown]
  - Cataract operation [Unknown]
